FAERS Safety Report 8859101 (Version 1)
Quarter: 2012Q4

REPORT INFORMATION
  Report Type: 
  Country: US (occurrence: US)
  Receive Date: 20121024
  Receipt Date: 20121024
  Transmission Date: 20130627
  Serious: Yes (Other)
  Sender: FDA-Public Use
  Company Number: US-PFIZER INC-2012261104

PATIENT
  Age: 14 Year
  Sex: Male
  Weight: 89.8 kg

DRUGS (2)
  1. VIAGRA [Suspect]
     Indication: ERECTILE DYSFUNCTION
     Dosage: 100 mg, as needed
     Route: 048
     Dates: start: 201208
  2. EFFEXOR [Suspect]
     Indication: ANXIETY
     Dosage: UNK
     Dates: start: 2010

REACTIONS (6)
  - Incorrect dose administered [Unknown]
  - Erection increased [Unknown]
  - Penile pain [Not Recovered/Not Resolved]
  - Thinking abnormal [Unknown]
  - Blood glucose decreased [Unknown]
  - Drug administered to patient of inappropriate age [Unknown]
